FAERS Safety Report 9915363 (Version 1)
Quarter: 2014Q1

REPORT INFORMATION
  Report Type: Spontaneous
  Country: US (occurrence: US)
  Receive Date: 20140221
  Receipt Date: 20140221
  Transmission Date: 20141002
  Serious: Yes (Life-Threatening)
  Sender: FDA-Public Use
  Company Number: US-BIOGENIDEC-2014BI014854

PATIENT
  Age: 70 Year
  Sex: Female

DRUGS (20)
  1. AVONEX [Suspect]
     Indication: MULTIPLE SCLEROSIS
     Route: 030
     Dates: start: 20110323
  2. ACYCLOVIR [Concomitant]
  3. ADVAIR DISKUS [Concomitant]
  4. CALCIUM+ D [Concomitant]
  5. CENTRUM [Concomitant]
  6. COLACE [Concomitant]
  7. COUMADIN [Concomitant]
  8. FISH OIL [Concomitant]
  9. GABAPENTIN [Concomitant]
  10. IRON [Concomitant]
  11. LASIX [Concomitant]
  12. LISINOPRIL [Concomitant]
  13. LOPRESSOR [Concomitant]
  14. METHADONE HCL [Concomitant]
  15. POTASSIUM CHLORIDE CRYS CR [Concomitant]
  16. PROVENTIL HFA [Concomitant]
  17. PROZAC [Concomitant]
  18. SPIRIVA HANDIHALER [Concomitant]
  19. VITAMIN D [Concomitant]
  20. VOLTAREN [Concomitant]

REACTIONS (1)
  - Myocardial infarction [Unknown]
